FAERS Safety Report 9199489 (Version 3)
Quarter: 2013Q2

REPORT INFORMATION
  Report Type: Spontaneous
  Country: US (occurrence: None)
  Receive Date: 20130326
  Receipt Date: 20130607
  Transmission Date: 20140414
  Serious: Yes (Other)
  Sender: FDA-Public Use
  Company Number: ACO_34801_2013

PATIENT
  Age: 72 Year
  Sex: Female
  Weight: 67.1 kg

DRUGS (6)
  1. AMPYRA [Suspect]
     Indication: GAIT DISTURBANCE
     Route: 048
     Dates: start: 2011, end: 201302
  2. PROVIGIL (MODAFINIL) [Concomitant]
  3. CYMBALTA (DULOXETINE HYDROCHLORIDE) [Concomitant]
  4. SPIRIVA (TIOTROPIUM BROMIDE) [Concomitant]
  5. CARISOPRODOL (CARISOPRODOL) [Concomitant]
  6. VITAMINS [Concomitant]

REACTIONS (8)
  - Lumbar puncture [None]
  - Gait disturbance [None]
  - Fatigue [None]
  - Walking aid user [None]
  - Adverse drug reaction [None]
  - Therapeutic response unexpected [None]
  - Energy increased [None]
  - Economic problem [None]
